FAERS Safety Report 8266903-5 (Version None)
Quarter: 2012Q2

REPORT INFORMATION
  Report Type: 
  Country: None (occurrence: None)
  Receive Date: 20120404
  Receipt Date: 20120404
  Transmission Date: 20120825
  Serious: Yes (Hospitalization)
  Sender: FDA-Public Use
  Company Number: None

PATIENT
  Sex: Female
  Weight: 81.1 kg

DRUGS (2)
  1. PENTOSTATIN [Suspect]
     Dosage: 7.86 MG
  2. CYCLOPHOSPHAMIDE [Suspect]
     Dosage: 1152 MG

REACTIONS (5)
  - BODY TEMPERATURE INCREASED [None]
  - WHITE BLOOD CELL COUNT DECREASED [None]
  - CHILLS [None]
  - DIARRHOEA [None]
  - BLOOD LACTATE DEHYDROGENASE INCREASED [None]
